FAERS Safety Report 7349751-X (Version None)
Quarter: 2011Q1

REPORT INFORMATION
  Report Type: 
  Country: None (occurrence: None)
  Receive Date: 20110314
  Receipt Date: 20110307
  Transmission Date: 20110831
  Serious: Yes (Other)
  Sender: FDA-Public Use
  Company Number: US-PFIZER INC-2011050130

PATIENT
  Sex: Female
  Weight: 74.83 kg

DRUGS (1)
  1. TOVIAZ [Suspect]
     Indication: BLADDER DISORDER
     Dosage: 4 MG, 1X/DAY
     Route: 048
     Dates: start: 20100101, end: 20100801

REACTIONS (7)
  - BLADDER SPASM [None]
  - VOMITING [None]
  - FALL [None]
  - FRUSTRATION [None]
  - SWELLING FACE [None]
  - CONCUSSION [None]
  - DRY MOUTH [None]
